FAERS Safety Report 6580192-9 (Version None)
Quarter: 2010Q1

REPORT INFORMATION
  Report Type: 
  Country: None (occurrence: None)
  Receive Date: 20100203
  Receipt Date: 20100125
  Transmission Date: 20100710
  Serious: Yes (Disabling)
  Sender: FDA-Public Use
  Company Number: 2009SP036545

PATIENT
  Age: 33 Year
  Sex: Male
  Weight: 72 kg

DRUGS (12)
  1. REMERON [Suspect]
     Indication: DEPRESSION
     Dosage: 30 MG; ; PO, 45 MG; ; PO, 15 MG; ; PO
     Route: 048
     Dates: start: 20090926, end: 20091009
  2. REMERON [Suspect]
     Indication: DEPRESSION
     Dosage: 30 MG; ; PO, 45 MG; ; PO, 15 MG; ; PO
     Route: 048
     Dates: start: 20091010, end: 20091023
  3. REMERON [Suspect]
     Indication: DEPRESSION
     Dosage: 30 MG; ; PO, 45 MG; ; PO, 15 MG; ; PO
     Route: 048
     Dates: start: 20091024, end: 20091030
  4. REMERON [Suspect]
     Indication: DEPRESSION
     Dosage: 30 MG; ; PO, 45 MG; ; PO, 15 MG; ; PO
     Route: 048
     Dates: start: 20091031, end: 20091107
  5. MIRTAZAPINE [Suspect]
     Indication: DEPRESSION
     Dosage: 15 MG; QD; PO
     Route: 048
     Dates: start: 20090912, end: 20090925
  6. TRYPTANOL [Concomitant]
  7. MYSLEE [Concomitant]
  8. DEPROMEL [Concomitant]
  9. LEXOTAN [Concomitant]
  10. VEGETAMIN B [Concomitant]
  11. ROHYPNOL [Concomitant]
  12. TRAZODONE HYDROCHLORIDE [Concomitant]

REACTIONS (2)
  - HYPOAESTHESIA [None]
  - PARALYSIS [None]
